FAERS Safety Report 20846630 (Version 2)
Quarter: 2022Q2

REPORT INFORMATION
  Report Type: Report from Study
  Country: AE (occurrence: AE)
  Receive Date: 20220519
  Receipt Date: 20220609
  Transmission Date: 20220721
  Serious: Yes (Death, Hospitalization)
  Sender: FDA-Public Use
  Company Number: AE-ABBVIE-22K-166-4400189-00

PATIENT
  Weight: 80 kg

DRUGS (6)
  1. RINVOQ [Suspect]
     Active Substance: UPADACITINIB
     Indication: Rheumatoid arthritis
     Dosage: ONCE DAILY
     Route: 048
     Dates: start: 20220201
  2. CEFEPIME [Concomitant]
     Active Substance: CEFEPIME HYDROCHLORIDE
     Indication: Lower respiratory tract infection
     Route: 042
     Dates: start: 20220401, end: 20220404
  3. CASPOFUNGIN [Concomitant]
     Active Substance: CASPOFUNGIN
     Indication: Antifungal prophylaxis
     Dosage: 70MG LOADING DOSE ONCE ONLY
     Route: 042
     Dates: start: 20220409, end: 20220409
  4. CASPOFUNGIN [Concomitant]
     Active Substance: CASPOFUNGIN
     Dosage: MAINTENANCE DOSE:50 MG
     Route: 042
     Dates: start: 20220410, end: 20220417
  5. ERTAPENEM [Concomitant]
     Active Substance: ERTAPENEM
     Indication: Lower respiratory tract infection
     Dosage: DAILY
     Route: 042
     Dates: start: 20220323, end: 20220331
  6. ERTAPENEM [Concomitant]
     Active Substance: ERTAPENEM
     Dosage: MAINTENANCE DOSE:50 MG
     Route: 042
     Dates: start: 20220410, end: 20220417

REACTIONS (3)
  - Septic shock [Fatal]
  - Lower respiratory tract infection [Fatal]
  - Respiratory distress [Fatal]

NARRATIVE: CASE EVENT DATE: 20220323
